FAERS Safety Report 4732849-X (Version None)
Quarter: 2005Q3

REPORT INFORMATION
  Report Type: 
  Country: None (occurrence: None)
  Receive Date: 20050801
  Receipt Date: 20050722
  Transmission Date: 20060218
  Serious: Yes (Other)
  Sender: FDA-Public Use
  Company Number: 2005098940

PATIENT
  Sex: Female

DRUGS (3)
  1. DOSTINEX [Suspect]
     Indication: PROLACTINOMA
     Dosage: 0.5 MG (0.5 MG, SINGLE INTERVAL:  EVERY OTHER DAY), ORAL
     Route: 048
     Dates: start: 20010101
  2. AMITRIPTYLINE HCL [Concomitant]
  3. RIVOTRIL (CLONAZEPAM) [Concomitant]

REACTIONS (1)
  - RESTLESS LEGS SYNDROME [None]
